FAERS Safety Report 8070176-6 (Version None)
Quarter: 2012Q1

REPORT INFORMATION
  Report Type: 
  Country: None (occurrence: None)
  Receive Date: 20120125
  Receipt Date: 20120124
  Transmission Date: 20120608
  Serious: Yes (Other)
  Sender: FDA-Public Use
  Company Number: US-BAYER-2012-007552

PATIENT
  Age: 39 Year
  Sex: Female

DRUGS (11)
  1. OXYCONTIN [Concomitant]
  2. BENZODIAZEPINE DERIVATIVES [Concomitant]
  3. MULTI-VITAMIN [Concomitant]
  4. AMITRIPTYLINE HCL [Concomitant]
  5. BETASERON [Suspect]
     Indication: RELAPSING-REMITTING MULTIPLE SCLEROSIS
     Dosage: 6 MIU, QOD
     Route: 058
     Dates: start: 20111201
  6. CYMBALTA [Concomitant]
  7. FOLIC ACID [Concomitant]
  8. BENADRYL [Concomitant]
     Dosage: UNK, PRN
  9. PREMARIN [Concomitant]
  10. HYDROCODONE [Concomitant]
  11. MORPHINAN DERIVATIVES [Concomitant]
     Route: 045

REACTIONS (2)
  - DYSKINESIA [None]
  - MUSCLE SPASMS [None]
